FAERS Safety Report 6202679-0 (Version None)
Quarter: 2009Q2

REPORT INFORMATION
  Report Type: 
  Country: None (occurrence: None)
  Receive Date: 20090526
  Receipt Date: 20090515
  Transmission Date: 20091009
  Serious: Yes (Other)
  Sender: FDA-Public Use
  Company Number: US-ELI_LILLY_AND_COMPANY-US200905003716

PATIENT
  Sex: Female

DRUGS (3)
  1. STRATTERA [Suspect]
     Indication: ATTENTION DEFICIT/HYPERACTIVITY DISORDER
     Dosage: 20 MG, EACH MORNING
     Route: 065
  2. STRATTERA [Suspect]
     Dosage: 20 MG, EACH EVENING
     Route: 065
  3. ZOLOFT [Concomitant]
     Dosage: 10 MG, UNKNOWN
     Route: 065

REACTIONS (3)
  - ARRHYTHMIA [None]
  - CHEST DISCOMFORT [None]
  - MIDDLE INSOMNIA [None]
